FAERS Safety Report 20613758 (Version 5)
Quarter: 2022Q4

REPORT INFORMATION
  Report Type: Report from Study
  Country: CA (occurrence: CA)
  Receive Date: 20220319
  Receipt Date: 20221118
  Transmission Date: 20230113
  Serious: Yes (Hospitalization, Other)
  Sender: FDA-Public Use
  Company Number: CA-ABBVIE-22K-028-4316855-00

PATIENT
  Age: 47 Year
  Sex: Female

DRUGS (2)
  1. HUMIRA [Suspect]
     Active Substance: ADALIMUMAB
     Indication: Hidradenitis
     Dosage: FORM STRENGTH: 40 MILLIGRAM
     Route: 058
     Dates: start: 20220202, end: 202203
  2. HUMIRA [Suspect]
     Active Substance: ADALIMUMAB
     Indication: Hidradenitis
     Dosage: FORM STRENGTH: 40 MILLIGRAM
     Route: 058
     Dates: start: 202205

REACTIONS (14)
  - Hallucination [Unknown]
  - Blindness [Unknown]
  - Nausea [Unknown]
  - Vomiting [Unknown]
  - Encephalitis viral [Unknown]
  - Gait inability [Not Recovered/Not Resolved]
  - Tremor [Unknown]
  - Fluid intake reduced [Unknown]
  - Mobility decreased [Not Recovered/Not Resolved]
  - Hypophagia [Unknown]
  - Hypoaesthesia [Not Recovered/Not Resolved]
  - Hidradenitis [Recovering/Resolving]
  - Fatigue [Unknown]
  - Nervous system disorder [Unknown]

NARRATIVE: CASE EVENT DATE: 20220301
